FAERS Safety Report 13031039 (Version 1)
Quarter: 2016Q4

REPORT INFORMATION
  Report Type: Spontaneous
  Country: US (occurrence: BR)
  Receive Date: 20161215
  Receipt Date: 20161215
  Transmission Date: 20170207
  Serious: Yes (Other)
  Sender: FDA-Public Use
  Company Number: BR-ALLERGAN-1000081901

PATIENT
  Age: 61 Year
  Sex: Male

DRUGS (3)
  1. CEFTAROLINE FOSAMIL UNK [Suspect]
     Active Substance: CEFTAROLINE FOSAMIL
     Indication: LUNG INFILTRATION
     Dosage: 600 MG, Q12H
     Route: 042
     Dates: start: 20151204
  2. TACROLIMUS. [Concomitant]
     Active Substance: TACROLIMUS
     Indication: RENAL TRANSPLANT
     Dosage: UNK
  3. EVEROLIMUS [Concomitant]
     Active Substance: EVEROLIMUS
     Indication: RENAL TRANSPLANT
     Dosage: UNK

REACTIONS (3)
  - Pancytopenia [Unknown]
  - Renal impairment [Unknown]
  - Fungal infection [Unknown]

NARRATIVE: CASE EVENT DATE: 20151205
